FAERS Safety Report 21159682 (Version 2)
Quarter: 2022Q3

REPORT INFORMATION
  Report Type: Report from Study
  Country: US (occurrence: US)
  Receive Date: 20220802
  Receipt Date: 20220815
  Transmission Date: 20221026
  Serious: Yes (Other)
  Sender: FDA-Public Use
  Company Number: US-JNJFOC-20220741161

PATIENT
  Age: 55 Year
  Sex: Female

DRUGS (3)
  1. SIMPONI ARIA [Suspect]
     Active Substance: GOLIMUMAB
     Indication: Rheumatoid arthritis
     Route: 041
     Dates: start: 20180523
  2. METHOTREXATE [Suspect]
     Active Substance: METHOTREXATE
  3. LEUCOVORIN [Suspect]
     Active Substance: LEUCOVORIN

REACTIONS (14)
  - Sinusitis [Unknown]
  - Pancreatitis chronic [Unknown]
  - Hypothyroidism [Unknown]
  - Hand fracture [Unknown]
  - Fall [Unknown]
  - Rheumatoid arthritis [Not Recovered/Not Resolved]
  - Rash [Recovered/Resolved]
  - Drug ineffective [Unknown]
  - Hypoaesthesia [Unknown]
  - Stomatitis [Not Recovered/Not Resolved]
  - Neuroma [Unknown]
  - Muscle spasms [Not Recovered/Not Resolved]
  - Gingival disorder [Unknown]
  - Gingival pain [Unknown]

NARRATIVE: CASE EVENT DATE: 20180101
